FAERS Safety Report 4939126-2 (Version None)
Quarter: 2006Q1

REPORT INFORMATION
  Report Type: 
  Country: None (occurrence: None)
  Receive Date: 20060306
  Receipt Date: 20060220
  Transmission Date: 20060701
  Serious: Yes (Hospitalization)
  Sender: FDA-Public Use
  Company Number: 2005051657

PATIENT
  Age: 54 Year
  Sex: Female

DRUGS (9)
  1. SUTENT [Suspect]
     Indication: GASTROINTESTINAL STROMAL TUMOUR
     Dosage: 50 MG (50 MG), ORAL
     Route: 048
     Dates: start: 20050127
  2. CALCIUM (CALCIUM) [Concomitant]
  3. HORMONIN (ESTRADIOL, ESTRIOL, ESTRONE) [Concomitant]
  4. LANSOPRAZOLE [Concomitant]
  5. DIFLUCAN [Concomitant]
  6. DOMPERIDONE (DOMPERIDONE) [Concomitant]
  7. DEXAMETHASONE [Concomitant]
  8. OXAZEPAM [Concomitant]
  9. TRANEXAMIC ACID (TRANEXAMIC ACID) [Concomitant]

REACTIONS (4)
  - CHILLS [None]
  - DIZZINESS [None]
  - HYPOTENSION [None]
  - UPPER RESPIRATORY TRACT INFECTION [None]
